FAERS Safety Report 25357787 (Version 1)
Quarter: 2025Q2

REPORT INFORMATION
  Report Type: Spontaneous
  Country: US (occurrence: US)
  Receive Date: 20250526
  Receipt Date: 20250526
  Transmission Date: 20250716
  Serious: Yes (Hospitalization)
  Sender: MACLEODS
  Company Number: US-MLMSERVICE-20250509-PI501514-00129-2

PATIENT

DRUGS (1)
  1. DOXYCYCLINE [Suspect]
     Active Substance: DOXYCYCLINE
     Indication: Sinusitis
     Route: 048

REACTIONS (2)
  - Intracranial pressure increased [Recovered/Resolved]
  - Optic perineuritis [Recovered/Resolved]
